FAERS Safety Report 14707287 (Version 2)
Quarter: 2018Q2

REPORT INFORMATION
  Report Type: Spontaneous
  Country: US (occurrence: US)
  Receive Date: 20180403
  Receipt Date: 20180411
  Transmission Date: 20180711
  Serious: No
  Sender: FDA-Public Use
  Company Number: US-TEVA-2018-US-875135

PATIENT
  Sex: Female

DRUGS (1)
  1. FENTANYL TEVA [Suspect]
     Active Substance: FENTANYL
     Indication: ARTHRALGIA
     Dosage: 25MCG 5
     Route: 065
     Dates: start: 20180320

REACTIONS (5)
  - Diarrhoea [Unknown]
  - Product adhesion issue [Unknown]
  - Wrong technique in product usage process [Unknown]
  - Nausea [Unknown]
  - Product use complaint [Unknown]

NARRATIVE: CASE EVENT DATE: 20180320
